FAERS Safety Report 4655939-9 (Version None)
Quarter: 2005Q2

REPORT INFORMATION
  Report Type: 
  Country: None (occurrence: None)
  Receive Date: 20050506
  Receipt Date: 20050506
  Transmission Date: 20051028
  Serious: No
  Sender: FDA-Public Use
  Company Number: None

PATIENT
  Age: 78 Year
  Weight: 70 kg

DRUGS (1)
  1. FLOMAX [Suspect]
     Dosage: .4 MG   DAILY   ORAL
     Route: 048

REACTIONS (2)
  - CATARACT OPERATION COMPLICATION [None]
  - IRIS DISORDER [None]
